FAERS Safety Report 4597136-1 (Version None)
Quarter: 2005Q1

REPORT INFORMATION
  Report Type: 
  Country: None (occurrence: None)
  Receive Date: 20050301
  Receipt Date: 20050211
  Transmission Date: 20050727
  Serious: No
  Sender: FDA-Public Use
  Company Number: A01200500212

PATIENT
  Age: 73 Year
  Sex: Female

DRUGS (4)
  1. PLAVIX [Suspect]
     Indication: ARTERIAL OCCLUSIVE DISEASE
     Dosage: 75 MG QD; 1 YEAR - TIME TO ONSET : 1 YEAR
     Route: 048
     Dates: end: 20041220
  2. PRAVASTATIN [Concomitant]
  3. PRAXILENE (NAFTIDROFURYL OXALATE) [Concomitant]
  4. ZOCOR [Concomitant]

REACTIONS (5)
  - ALVEOLITIS [None]
  - ATELECTASIS [None]
  - BRONCHIAL NEOPLASM [None]
  - PULMONARY ALVEOLAR HAEMORRHAGE [None]
  - PULMONARY EMBOLISM [None]
